FAERS Safety Report 8567148-1 (Version None)
Quarter: 2012Q3

REPORT INFORMATION
  Report Type: 
  Country: None (occurrence: None)
  Receive Date: 20120803
  Receipt Date: 20110826
  Transmission Date: 20120928
  Serious: No
  Sender: FDA-Public Use
  Company Number: US-ABBOTT-11P-163-0849692-00

PATIENT
  Sex: Male

DRUGS (4)
  1. VYTORIN [Concomitant]
     Indication: BLOOD CHOLESTEROL
  2. NIASPAN [Suspect]
     Indication: BLOOD TRIGLYCERIDES INCREASED
     Dosage: 500 MILLIGRAM, DAILY
     Dates: start: 20110801
  3. ATENOLOL [Concomitant]
     Indication: HYPERTENSION
  4. CARDURA [Concomitant]
     Indication: PROSTATIC DISORDER

REACTIONS (5)
  - PRURITUS [None]
  - PARAESTHESIA [None]
  - BURNING SENSATION [None]
  - FEELING HOT [None]
  - PAIN OF SKIN [None]
